FAERS Safety Report 5550911-9 (Version None)
Quarter: 2007Q4

REPORT INFORMATION
  Report Type: 
  Country: None (occurrence: None)
  Receive Date: 20071212
  Receipt Date: 20070521
  Transmission Date: 20080405
  Serious: No
  Sender: FDA-Public Use
  Company Number: US-AMGEN-KDL222844

PATIENT
  Sex: Male
  Weight: 99.4 kg

DRUGS (2)
  1. ENBREL [Suspect]
     Indication: ANKYLOSING SPONDYLITIS
     Route: 058
     Dates: start: 20070409, end: 20070506
  2. ALEVE [Concomitant]
     Dates: start: 20060101

REACTIONS (8)
  - ERYTHEMA [None]
  - FEELING HOT [None]
  - INJECTION SITE RASH [None]
  - INJECTION SITE SWELLING [None]
  - OEDEMA PERIPHERAL [None]
  - PRURITUS [None]
  - RASH [None]
  - SWELLING [None]
